FAERS Safety Report 5211652-0 (Version None)
Quarter: 2007Q1

REPORT INFORMATION
  Report Type: 
  Country: None (occurrence: None)
  Receive Date: 20070117
  Receipt Date: 20070117
  Transmission Date: 20070707
  Serious: No
  Sender: FDA-Public Use
  Company Number: None

PATIENT
  Age: 48 Year
  Sex: Female
  Weight: 88.4514 kg

DRUGS (1)
  1. NITROFURANTOIN MACROCRYSTALLINE [Suspect]
     Indication: BACTERIA URINE
     Dosage: 1 TABLET TWICE A DAY PO
     Route: 048
     Dates: start: 20060111, end: 20060111

REACTIONS (6)
  - ARTHRALGIA [None]
  - CHILLS [None]
  - HEADACHE [None]
  - NAUSEA [None]
  - NECK PAIN [None]
  - PYREXIA [None]
